FAERS Safety Report 4280863-3 (Version None)
Quarter: 2004Q1

REPORT INFORMATION
  Report Type: 
  Country: None (occurrence: None)
  Receive Date: 20040127
  Receipt Date: 20040115
  Transmission Date: 20041129
  Serious: Yes (Hospitalization)
  Sender: FDA-Public Use
  Company Number: HQWYE383515JAN04

PATIENT
  Age: 88 Year
  Sex: Male

DRUGS (7)
  1. CORDARONE [Suspect]
     Dosage: TABLET 200 MG ORAL
     Route: 048
     Dates: start: 20000101, end: 20030922
  2. COVERSYL (PERINDOPRIL, ) [Suspect]
     Dosage: TABLET, ORAL
     Route: 048
     Dates: start: 20000101, end: 20030922
  3. SINTROM [Suspect]
     Dosage: TABLET 1 MG, ORAL, AFEW YEARS
     Route: 048
     Dates: end: 20030915
  4. NORFLOXACIN [Suspect]
     Indication: PROSTATITIS
     Dosage: 400 MG TABLET, ORAL
     Route: 048
     Dates: start: 20030909, end: 20030915
  5. AMOXICILLIN TRIHYDRATE [Concomitant]
  6. BURINEX (NUMETANIDE) [Concomitant]
  7. PRAVASTATIN SODIUM [Concomitant]

REACTIONS (4)
  - CONDITION AGGRAVATED [None]
  - HEPATITIS [None]
  - PHLEBITIS [None]
  - RENAL FAILURE [None]
